FAERS Safety Report 8423237-3 (Version None)
Quarter: 2012Q2

REPORT INFORMATION
  Report Type: 
  Country: None (occurrence: None)
  Receive Date: 20120608
  Receipt Date: 20120531
  Transmission Date: 20120825
  Serious: Yes (Other)
  Sender: FDA-Public Use
  Company Number: FR-JNJFOC-20120601711

PATIENT
  Age: 65 Year
  Sex: Female

DRUGS (2)
  1. REMICADE [Suspect]
     Indication: COLITIS ULCERATIVE
     Route: 042
     Dates: start: 20100101, end: 20110501
  2. IMURAN [Concomitant]
     Indication: COLITIS ULCERATIVE

REACTIONS (2)
  - CHRONIC MYELOID LEUKAEMIA [None]
  - MENINGITIS LISTERIA [None]
